FAERS Safety Report 5095414-3 (Version None)
Quarter: 2006Q3

REPORT INFORMATION
  Report Type: 
  Country: None (occurrence: None)
  Receive Date: 20060901
  Receipt Date: 20060728
  Transmission Date: 20061208
  Serious: Yes (Other)
  Sender: FDA-Public Use
  Company Number: DE-ROCHE-457404

PATIENT
  Age: 77 Year
  Sex: Female
  Weight: 45 kg

DRUGS (1)
  1. BONIVA [Suspect]
     Indication: OSTEOPOROSIS
     Route: 042
     Dates: end: 20060726

REACTIONS (5)
  - CEREBROVASCULAR INSUFFICIENCY [None]
  - CIRCULATORY COLLAPSE [None]
  - COMA [None]
  - DISTURBANCE IN ATTENTION [None]
  - HYPOTENSION [None]
